FAERS Safety Report 7593817-6 (Version None)
Quarter: 2011Q3

REPORT INFORMATION
  Report Type: 
  Country: None (occurrence: None)
  Receive Date: 20110706
  Receipt Date: 20110628
  Transmission Date: 20111222
  Serious: Yes (Other)
  Sender: FDA-Public Use
  Company Number: FI-UCBSA-036254

PATIENT
  Sex: Female

DRUGS (5)
  1. PREDNISOLONE [Concomitant]
     Indication: RHEUMATOID ARTHRITIS
     Dates: start: 20100101, end: 20110101
  2. PREDNISOLONE [Concomitant]
     Dosage: DOSE INCREASED TO 40 MG
     Dates: start: 20110101, end: 20110101
  3. PREDNISOLONE [Concomitant]
     Dosage: DECREASED TO 15 MG
     Dates: start: 20110101
  4. ARAVA [Concomitant]
     Indication: RHEUMATOID ARTHRITIS
     Dates: start: 20110101, end: 20110316
  5. CIMZIA [Suspect]
     Indication: RHEUMATOID ARTHRITIS
     Dosage: (2 X 200MG) 1ST AND 2ND DOSE
     Route: 058
     Dates: start: 20110210, end: 20110303

REACTIONS (3)
  - DYSPNOEA [None]
  - MUSCLE SPASMS [None]
  - PYREXIA [None]
